FAERS Safety Report 23084170 (Version 1)
Quarter: 2023Q4

REPORT INFORMATION
  Report Type: Report from Study
  Country: US (occurrence: US)
  Receive Date: 20231019
  Receipt Date: 20231019
  Transmission Date: 20240110
  Serious: Yes (Other)
  Sender: FDA-Public Use
  Company Number: US-ABBVIE-5456240

PATIENT
  Sex: Female

DRUGS (1)
  1. RINVOQ [Suspect]
     Active Substance: UPADACITINIB
     Indication: Ankylosing spondylitis
     Dosage: LAST ADMIN DATE: 2023
     Route: 048
     Dates: start: 20230524

REACTIONS (3)
  - Thyroid operation [Recovering/Resolving]
  - Rash [Recovering/Resolving]
  - Gastric neoplasm [Unknown]

NARRATIVE: CASE EVENT DATE: 20230101
